FAERS Safety Report 5626970-1 (Version None)
Quarter: 2008Q1

REPORT INFORMATION
  Report Type: 
  Country: None (occurrence: None)
  Receive Date: 20080130
  Receipt Date: 20071106
  Transmission Date: 20080703
  Serious: Yes (Death)
  Sender: FDA-Public Use
  Company Number: US-WYE-H01195707

PATIENT
  Age: 66 Year
  Sex: Male

DRUGS (1)
  1. CORDARONE [Suspect]
     Indication: SUPRAVENTRICULAR TACHYCARDIA
     Dates: start: 20021101, end: 20031205

REACTIONS (1)
  - PULMONARY TOXICITY [None]
